FAERS Safety Report 18278709 (Version 3)
Quarter: 2020Q4

REPORT INFORMATION
  Report Type: Report from Study
  Country: BE (occurrence: BE)
  Receive Date: 20200917
  Receipt Date: 20201130
  Transmission Date: 20210113
  Serious: Yes (Hospitalization)
  Sender: FDA-Public Use
  Company Number: BE-PFIZER INC-2020360063

PATIENT
  Age: 77 Year
  Sex: Male
  Weight: 55 kg

DRUGS (10)
  1. VINBLASTINE [Suspect]
     Active Substance: VINBLASTINE
     Indication: BLADDER TRANSITIONAL CELL CARCINOMA
     Dosage: UNK, CYCLIC (EVERY TWO WEEKS)
     Route: 042
     Dates: start: 20200730
  2. METHOTREXATE SODIUM. [Suspect]
     Active Substance: METHOTREXATE SODIUM
     Dosage: 52 MG, CYCLIC (EVERY 2 WEEKS)
     Route: 042
     Dates: start: 20200826, end: 20200826
  3. DOXORUBICIN HCL [Suspect]
     Active Substance: DOXORUBICIN HYDROCHLORIDE
     Indication: BLADDER TRANSITIONAL CELL CARCINOMA
     Dosage: UNK, CYCLIC (EVERY TWO WEEKS)
     Route: 042
     Dates: start: 20200730
  4. AVELUMAB [Suspect]
     Active Substance: AVELUMAB
     Indication: BLADDER TRANSITIONAL CELL CARCINOMA
     Dosage: UNK, CYCLIC (EVERY 2 WEEKS)
     Route: 042
     Dates: start: 20200730
  5. CISPLATIN. [Suspect]
     Active Substance: CISPLATIN
     Indication: BLADDER TRANSITIONAL CELL CARCINOMA
     Dosage: UNK, EVERY 3 WEEKS
     Route: 042
     Dates: start: 20200730
  6. CISPLATIN. [Suspect]
     Active Substance: CISPLATIN
     Dosage: 120 MG, EVERY 3 WEEKS
     Route: 042
     Dates: start: 20200827, end: 20200827
  7. VINBLASTINE [Suspect]
     Active Substance: VINBLASTINE
     Dosage: 5 MG, CYCLIC (EVERY 2 WEEKS)
     Route: 042
     Dates: start: 20200827, end: 20200827
  8. DOXORUBICIN HCL [Suspect]
     Active Substance: DOXORUBICIN HYDROCHLORIDE
     Dosage: 52 MG, CYCLIC (EVERY 2 WEEKS)
     Route: 042
     Dates: start: 20200827, end: 20200827
  9. AVELUMAB [Suspect]
     Active Substance: AVELUMAB
     Dosage: 640 MG, CYCLIC (EVERY 2 WEEKS)
     Route: 042
     Dates: start: 20200827, end: 20200827
  10. METHOTREXATE SODIUM. [Suspect]
     Active Substance: METHOTREXATE SODIUM
     Indication: BLADDER TRANSITIONAL CELL CARCINOMA
     Dosage: UNK, CYCLIC (EVERY 2 WEEKS)
     Route: 042
     Dates: start: 20200729

REACTIONS (1)
  - Mucosal inflammation [Recovered/Resolved]

NARRATIVE: CASE EVENT DATE: 20200907
